FAERS Safety Report 5703315-X (Version None)
Quarter: 2008Q2

REPORT INFORMATION
  Report Type: 
  Country: None (occurrence: None)
  Receive Date: 20080411
  Receipt Date: 20080403
  Transmission Date: 20081010
  Serious: Yes (Hospitalization)
  Sender: FDA-Public Use
  Company Number: US-ABBOTT-08P-163-0445686-00

PATIENT
  Sex: Male
  Weight: 81.72 kg

DRUGS (9)
  1. HUMIRA [Suspect]
     Indication: CROHN'S DISEASE
     Route: 058
     Dates: start: 20070501
  2. HUMIRA [Suspect]
  3. HUMIRA [Suspect]
  4. MESALAMINE [Concomitant]
     Indication: CROHN'S DISEASE
     Route: 048
  5. ESOMEPRAZOLE MAGNESIUM [Concomitant]
     Indication: GASTROOESOPHAGEAL REFLUX DISEASE
     Route: 048
  6. VITAMINS [Concomitant]
     Indication: VITAMIN SUPPLEMENTATION
     Route: 048
  7. ZITHROMAX [Concomitant]
     Indication: PLEURISY
     Dosage: NEXT 4 DAYS
     Route: 048
     Dates: start: 20080312, end: 20080312
  8. ZITHROMAX [Concomitant]
     Dates: start: 20080316
  9. ANTIBIOTICS [Concomitant]
     Indication: PLEURISY
     Route: 042
     Dates: start: 20080311, end: 20080312

REACTIONS (2)
  - LOWER RESPIRATORY TRACT INFECTION [None]
  - PLEURISY [None]
